FAERS Safety Report 9123014 (Version 1)
Quarter: 2013Q1

REPORT INFORMATION
  Report Type: Spontaneous
  Country: US (occurrence: US)
  Receive Date: 20130115
  Receipt Date: 20130115
  Transmission Date: 20140127
  Serious: Yes (Disabling, Other)
  Sender: FDA-Public Use
  Company Number: US-ROCHE-1176424

PATIENT
  Sex: Male

DRUGS (1)
  1. AVASTIN [Suspect]
     Indication: OFF LABEL USE
     Route: 050

REACTIONS (5)
  - Blindness unilateral [Unknown]
  - Visual impairment [Unknown]
  - Drug ineffective [Unknown]
  - Hypoacusis [Unknown]
  - Confusional state [Unknown]
